FAERS Safety Report 9279108 (Version 1)
Quarter: 2012Q4

REPORT INFORMATION
  Report Type: Spontaneous
  Country: JP (occurrence: None)
  Receive Date: 20120925
  Receipt Date: 20120925
  Transmission Date: 20130627
  Serious: Yes (Death)
  Sender: FDA-Public Use
  Company Number: JP-20120045

PATIENT
  Age: 75 Year
  Sex: Male

DRUGS (3)
  1. ETHIODOL [Suspect]
     Indication: TRANSCATHETER ARTERIAL EMBOLISATION
     Dosage: (1.9 ml, 1 in 1 D)
     Route: 013
     Dates: start: 20110112, end: 20110112
  2. CISPLATIN [Suspect]
     Indication: TRANSCATHETER ARTERIAL EMBOLISATION
     Dosage: (38 mg, 1 in 1 D)
     Route: 013
     Dates: start: 20110112, end: 20110112
  3. GELATIN [Suspect]
     Indication: TRANSCATHETER ARTERIAL EMBOLISATION
     Dosage: (1 in 1D)
     Route: 013
     Dates: start: 20110112, end: 20110112

REACTIONS (5)
  - Interstitial lung disease [None]
  - Off label use [None]
  - Hepatic failure [None]
  - Platelet count decreased [None]
  - White blood cell count decreased [None]
